FAERS Safety Report 5512460-3 (Version None)
Quarter: 2007Q4

REPORT INFORMATION
  Report Type: 
  Country: None (occurrence: None)
  Receive Date: 20071112
  Receipt Date: 20070420
  Transmission Date: 20080405
  Serious: No
  Sender: FDA-Public Use
  Company Number: A0640103A

PATIENT
  Age: 51 Year
  Sex: Male

DRUGS (8)
  1. AVANDAMET [Suspect]
     Dosage: 1TAB PER DAY
     Route: 048
     Dates: start: 20060901
  2. METOPROLOL TARTRATE [Concomitant]
  3. GLYCLAZIDE [Concomitant]
  4. LISINOPRIL [Concomitant]
  5. VYTORIN [Concomitant]
  6. PLAVIX [Concomitant]
  7. ASPIRIN [Concomitant]
  8. MULTI-VITAMIN [Concomitant]

REACTIONS (4)
  - FLUID RETENTION [None]
  - GAIT DISTURBANCE [None]
  - JOINT SWELLING [None]
  - WEIGHT INCREASED [None]
